FAERS Safety Report 10785027 (Version 1)
Quarter: 2015Q1

REPORT INFORMATION
  Report Type: Spontaneous
  Country: CN (occurrence: None)
  Receive Date: 20150209
  Receipt Date: 20150209
  Transmission Date: 20150721
  Serious: No
  Sender: FDA-Public Use
  Company Number: CN2015GSK010218

PATIENT
  Age: 53 Year
  Sex: Female

DRUGS (2)
  1. SEROXAT [Suspect]
     Active Substance: PAROXETINE HYDROCHLORIDE
     Indication: ANXIETY
     Route: 048
     Dates: start: 2003
  2. SEROXAT [Suspect]
     Active Substance: PAROXETINE HYDROCHLORIDE
     Indication: DEPRESSION
     Route: 048
     Dates: start: 2003

REACTIONS (5)
  - Palpitations [None]
  - Headache [None]
  - Refusal of treatment by patient [None]
  - Abdominal discomfort [None]
  - Anger [None]
